FAERS Safety Report 23388234 (Version 1)
Quarter: 2024Q1

REPORT INFORMATION
  Report Type: Spontaneous
  Country: FR (occurrence: FR)
  Receive Date: 20240110
  Receipt Date: 20240110
  Transmission Date: 20240410
  Serious: Yes (Other)
  Sender: FDA-Public Use
  Company Number: FR-PFIZER INC-PV202400002425

PATIENT
  Age: 32 Year
  Sex: Female

DRUGS (2)
  1. OXBRYTA [Suspect]
     Active Substance: VOXELOTOR
     Indication: Haemolytic anaemia
     Dosage: 1500 MG, DAILY
     Dates: start: 20221201
  2. OXBRYTA [Suspect]
     Active Substance: VOXELOTOR
     Dosage: 1000 MG, DAILY

REACTIONS (11)
  - Haemoglobin abnormal [Unknown]
  - Haematocrit abnormal [Unknown]
  - White blood cell count abnormal [Unknown]
  - Neutrophil count abnormal [Unknown]
  - Reticulocyte count abnormal [Unknown]
  - Aspartate aminotransferase abnormal [Unknown]
  - Blood lactate dehydrogenase increased [Unknown]
  - Blood bilirubin abnormal [Unknown]
  - Asthenia [Unknown]
  - Dyspnoea [Unknown]
  - Headache [Unknown]

NARRATIVE: CASE EVENT DATE: 20221223
